FAERS Safety Report 9675096 (Version 2)
Quarter: 2013Q4

REPORT INFORMATION
  Report Type: Spontaneous
  Country: IE (occurrence: IE)
  Receive Date: 20131107
  Receipt Date: 20131107
  Transmission Date: 20140711
  Serious: Yes (Hospitalization, Other)
  Sender: FDA-Public Use
  Company Number: IE-PFIZER INC-2013190732

PATIENT
  Age: 68 Year
  Sex: Male

DRUGS (6)
  1. TAZOCIN [Suspect]
     Indication: SKIN ULCER
     Dosage: 4.5 G, 3X/DAY
     Route: 042
     Dates: start: 20121116, end: 20121120
  2. ZYVOX [Suspect]
     Indication: SKIN ULCER
     Dosage: 600 MG, 2X/DAY
     Dates: start: 20121116, end: 20121120
  3. ZYVOX [Suspect]
     Dosage: 600 MG, 2X/DAY
     Dates: start: 20121207, end: 20121212
  4. VANCOMYCIN HCL [Suspect]
     Indication: SKIN ULCER
     Dosage: VARIED DOSE
     Route: 042
     Dates: start: 20121120, end: 20121203
  5. FLUCLOXACILLIN [Suspect]
     Indication: SKIN ULCER
     Dosage: 4 G, DAILY
     Route: 042
     Dates: start: 20121107, end: 20121116
  6. FUCIBET CREAM [Suspect]
     Indication: ECZEMA
     Route: 061

REACTIONS (4)
  - Liver disorder [Recovered/Resolved]
  - Renal failure chronic [Not Recovered/Not Resolved]
  - Rash macular [Recovered/Resolved]
  - Rash pruritic [Recovered/Resolved]
